FAERS Safety Report 18033623 (Version 1)
Quarter: 2020Q3

REPORT INFORMATION
  Report Type: Spontaneous
  Country: JP (occurrence: JP)
  Receive Date: 20200717
  Receipt Date: 20200717
  Transmission Date: 20201103
  Serious: Yes (Other)
  Sender: FDA-Public Use
  Company Number: JP-AMGEN-JPNSP2020114892

PATIENT
  Sex: Female

DRUGS (1)
  1. ENBREL [Suspect]
     Active Substance: ETANERCEPT
     Indication: PRODUCT USED FOR UNKNOWN INDICATION
     Dosage: UNK
     Route: 058

REACTIONS (12)
  - Systemic lupus erythematosus [Unknown]
  - Cough [Unknown]
  - Pain [Unknown]
  - Pyrexia [Unknown]
  - Finger deformity [Unknown]
  - Rheumatic disorder [Unknown]
  - Malaise [Unknown]
  - Mental fatigue [Unknown]
  - Decreased activity [Unknown]
  - Infection [Unknown]
  - Insomnia [Unknown]
  - Anxiety [Unknown]
